FAERS Safety Report 12626508 (Version 2)
Quarter: 2016Q3

REPORT INFORMATION
  Report Type: Spontaneous
  Country: US (occurrence: US)
  Receive Date: 20160805
  Receipt Date: 20160902
  Transmission Date: 20161109
  Serious: No
  Sender: FDA-Public Use
  Company Number: US-PFIZER INC-2016352172

PATIENT
  Age: 88 Year
  Sex: Female
  Weight: 66 kg

DRUGS (1)
  1. ADVIL [Suspect]
     Active Substance: IBUPROFEN
     Indication: RETINAL OEDEMA
     Dosage: 200 MG, 2X/DAY
     Dates: start: 20160713

REACTIONS (3)
  - Product use issue [Unknown]
  - Drug dose omission [Unknown]
  - Peripheral swelling [Recovering/Resolving]

NARRATIVE: CASE EVENT DATE: 201607
